FAERS Safety Report 5197652-8 (Version None)
Quarter: 2007Q1

REPORT INFORMATION
  Report Type: 
  Country: None (occurrence: None)
  Receive Date: 20070103
  Receipt Date: 20061214
  Transmission Date: 20070707
  Serious: Yes (Death)
  Sender: FDA-Public Use
  Company Number: JP-PFIZER INC-2006155671

PATIENT
  Sex: Male

DRUGS (1)
  1. ESTRACYT [Suspect]
     Dosage: DAILY DOSE:156.7MG
     Route: 048
     Dates: start: 20061212, end: 20061212

REACTIONS (1)
  - SUDDEN DEATH [None]
